FAERS Safety Report 4989158-3 (Version None)
Quarter: 2006Q1

REPORT INFORMATION
  Report Type: 
  Country: None (occurrence: None)
  Receive Date: 20060314
  Receipt Date: 20051230
  Transmission Date: 20060701
  Serious: Yes (Other)
  Sender: FDA-Public Use
  Company Number: 200610044BCC

PATIENT
  Age: 57 Year
  Sex: Male
  Weight: 95.2554 kg

DRUGS (2)
  1. ALEVE [Suspect]
     Dosage: 440 MG TOTAL DAILY, ORAL
     Route: 048
     Dates: start: 20051230
  2. HIGH BLOOD PRESSURE PILL [Concomitant]

REACTIONS (5)
  - ANAPHYLACTIC REACTION [None]
  - DYSPNOEA [None]
  - PRURITUS [None]
  - SWELLING [None]
  - SWELLING FACE [None]
